FAERS Safety Report 8550998-5 (Version None)
Quarter: 2012Q3

REPORT INFORMATION
  Report Type: 
  Country: None (occurrence: None)
  Receive Date: 20120730
  Receipt Date: 20110705
  Transmission Date: 20120928
  Serious: No
  Sender: FDA-Public Use
  Company Number: US-JHP PHARMACEUTICALS, LLC-JHP201100270

PATIENT

DRUGS (1)
  1. CORTISPORIN TC OTIC [Suspect]
     Indication: EAR DISCOMFORT
     Dosage: OTIC DROPS
     Route: 001
     Dates: start: 20110630, end: 20110704

REACTIONS (3)
  - PRURITUS [None]
  - OTORRHOEA [None]
  - EAR PAIN [None]
